FAERS Safety Report 8021876-5 (Version None)
Quarter: 2011Q4

REPORT INFORMATION
  Report Type: 
  Country: None (occurrence: None)
  Receive Date: 20111230
  Receipt Date: 20111215
  Transmission Date: 20120403
  Serious: Yes (Other)
  Sender: FDA-Public Use
  Company Number: 2011MA017699

PATIENT
  Age: 45 Year
  Sex: Male

DRUGS (5)
  1. DULOXETIME HYDROCHLORIDE [Concomitant]
  2. DESIPRAMINE HYDROCHLORIDE [Suspect]
     Indication: PAIN
     Dosage: 10 MG;HS;
  3. DESIPRAMINE HYDROCHLORIDE [Suspect]
     Indication: DEPRESSION
     Dosage: 10 MG;HS;
  4. DESIPRAMINE HYDROCHLORIDE [Suspect]
     Indication: CROHN'S DISEASE
     Dosage: 10 MG;HS;
  5. METHADONE HCL [Concomitant]

REACTIONS (6)
  - NEPHROLITHIASIS [None]
  - INSOMNIA [None]
  - SEROTONIN SYNDROME [None]
  - ANXIETY [None]
  - CONDITION AGGRAVATED [None]
  - INCORRECT DOSE ADMINISTERED [None]
